FAERS Safety Report 4736236-X (Version None)
Quarter: 2005Q3

REPORT INFORMATION
  Report Type: 
  Country: None (occurrence: None)
  Receive Date: 20050804
  Receipt Date: 20050804
  Transmission Date: 20060218
  Serious: Yes (Other)
  Sender: FDA-Public Use
  Company Number: None

PATIENT
  Age: 71 Year
  Sex: Male
  Weight: 73 kg

DRUGS (9)
  1. EZETIMIBE [Suspect]
  2. LEVOTHYROXINE SODIUM [Concomitant]
  3. ABSORBASE [Concomitant]
  4. UREA CREAM [Concomitant]
  5. FOSINOPRIL SODIUM [Concomitant]
  6. GLYBURIDE AND METFORMIN HCL [Concomitant]
  7. SIMVASTATIN [Concomitant]
  8. HYDROCORTISONE [Concomitant]
  9. SALICYLIC ACID / SULFUR [Concomitant]

REACTIONS (3)
  - ERYTHEMA [None]
  - FLUSHING [None]
  - SWELLING [None]
